FAERS Safety Report 8988506 (Version 1)
Quarter: 2012Q4

REPORT INFORMATION
  Report Type: Spontaneous
  Country: US (occurrence: None)
  Receive Date: 20121224
  Receipt Date: 20121224
  Transmission Date: 20130627
  Serious: No
  Sender: FDA-Public Use
  Company Number: None

PATIENT
  Age: 75 Year
  Sex: Male
  Weight: 132.45 kg

DRUGS (1)
  1. LISINOPRIL 20 MG [Suspect]

REACTIONS (1)
  - Swelling face [None]
